FAERS Safety Report 20342892 (Version 1)
Quarter: 2022Q1

REPORT INFORMATION
  Report Type: Spontaneous
  Country: US (occurrence: US)
  Receive Date: 20220117
  Receipt Date: 20220117
  Transmission Date: 20220423
  Serious: Yes (Hospitalization, Disabling, Congenital Anomaly, Other)
  Sender: FDA-Public Use
  Company Number: US-TEVA-2022-US-1998879

PATIENT
  Age: 0 Day
  Sex: Female
  Weight: 3.02 kg

DRUGS (20)
  1. ACETAMINOPHEN\HYDROCODONE [Suspect]
     Active Substance: ACETAMINOPHEN\HYDROCODONE
     Indication: Pain
     Dosage: 2 DOSAGE FORMS DAILY; 7.5/750 MG, IN -2003
     Route: 064
  2. ACETAMINOPHEN\HYDROCODONE [Suspect]
     Active Substance: ACETAMINOPHEN\HYDROCODONE
     Dosage: 7.5/750 MG, IN -2004
     Route: 064
  3. ACETAMINOPHEN\HYDROCODONE [Suspect]
     Active Substance: ACETAMINOPHEN\HYDROCODONE
     Dosage: 10/325 MG , IN -2004 AND -2005
     Route: 064
  4. ACETAMINOPHEN\HYDROCODONE [Suspect]
     Active Substance: ACETAMINOPHEN\HYDROCODONE
     Dosage: 10/325 TAB , IN -2004 AND 2005
     Route: 064
  5. OXYCODONE [Suspect]
     Active Substance: OXYCODONE
     Indication: Multiple fractures
     Route: 064
     Dates: start: 2004, end: 2010
  6. OXYCODONE [Suspect]
     Active Substance: OXYCODONE
     Indication: Pain
  7. TRAMADOL HCL [Suspect]
     Active Substance: TRAMADOL HYDROCHLORIDE
     Indication: Multiple fractures
     Dosage: PRN
     Route: 064
     Dates: start: 19931030
  8. ACETAMINOPHEN\HYDROCODONE [Suspect]
     Active Substance: ACETAMINOPHEN\HYDROCODONE
     Indication: Pain
     Dosage: 10/325MG , IN -2004 AND -2005
     Route: 064
  9. ACETAMINOPHEN\HYDROCODONE [Suspect]
     Active Substance: ACETAMINOPHEN\HYDROCODONE
     Dosage: 6 DOSAGE FORMS DAILY; 10/325 MG
     Route: 048
  10. ACETAMINOPHEN\HYDROCODONE [Suspect]
     Active Substance: ACETAMINOPHEN\HYDROCODONE
     Dosage: 12 DOSAGE FORMS DAILY; 10/325 MG , IN -2005 AND -2006
     Route: 048
  11. ACETAMINOPHEN\HYDROCODONE [Suspect]
     Active Substance: ACETAMINOPHEN\HYDROCODONE
     Dosage: 5/500MG, IN -2004
     Route: 048
  12. ACETAMINOPHEN\HYDROCODONE [Suspect]
     Active Substance: ACETAMINOPHEN\HYDROCODONE
     Dosage: 7.5/750 MG, IN -2004
     Route: 048
  13. ACETAMINOPHEN\HYDROCODONE [Suspect]
     Active Substance: ACETAMINOPHEN\HYDROCODONE
     Dosage: 7.5/325 MG , IN -2005
     Route: 048
  14. ACETAMINOPHEN\HYDROCODONE [Suspect]
     Active Substance: ACETAMINOPHEN\HYDROCODONE
     Dosage: 10/325 MG , IN 2004 AND 2005
     Route: 048
  15. NORCO [Suspect]
     Active Substance: ACETAMINOPHEN\HYDROCODONE BITARTRATE
     Indication: Multiple fractures
     Route: 064
     Dates: start: 2004, end: 2010
  16. NORCO [Suspect]
     Active Substance: ACETAMINOPHEN\HYDROCODONE BITARTRATE
     Indication: Pain
  17. OXYCONTIN [Suspect]
     Active Substance: OXYCODONE HYDROCHLORIDE
     Indication: Multiple fractures
     Route: 064
     Dates: start: 2004, end: 2010
  18. OXYCONTIN [Suspect]
     Active Substance: OXYCODONE HYDROCHLORIDE
     Indication: Pain
  19. VICODIN [Suspect]
     Active Substance: ACETAMINOPHEN\HYDROCODONE BITARTRATE
     Indication: Multiple fractures
     Route: 064
     Dates: start: 2004, end: 2010
  20. VICODIN [Suspect]
     Active Substance: ACETAMINOPHEN\HYDROCODONE BITARTRATE
     Indication: Pain

REACTIONS (11)
  - Drug withdrawal syndrome neonatal [Unknown]
  - Learning disability [Unknown]
  - Tricuspid valve incompetence [Unknown]
  - Pulmonary artery stenosis congenital [Unknown]
  - Social avoidant behaviour [Unknown]
  - Social avoidant behaviour [Unknown]
  - Foetal exposure during pregnancy [Unknown]
  - Weight fluctuation [Recovering/Resolving]
  - Flatulence [Recovered/Resolved]
  - Abdominal pain [Recovered/Resolved]
  - Protein intolerance [Unknown]

NARRATIVE: CASE EVENT DATE: 20060601
